FAERS Safety Report 25176511 (Version 4)
Quarter: 2025Q2

REPORT INFORMATION
  Report Type: Report from Study
  Country: CA (occurrence: CA)
  Receive Date: 20250409
  Receipt Date: 20250513
  Transmission Date: 20250717
  Serious: Yes (Death, Other)
  Sender: ALEXION PHARMACEUTICALS
  Company Number: CA-AstraZeneca-CH-00842140A

PATIENT
  Weight: 63.492 kg

DRUGS (6)
  1. TEZEPELUMAB [Suspect]
     Active Substance: TEZEPELUMAB
  2. OLODATEROL HYDROCHLORIDE\TIOTROPIUM BROMIDE MONOHYDRATE [Concomitant]
     Active Substance: OLODATEROL HYDROCHLORIDE\TIOTROPIUM BROMIDE MONOHYDRATE
     Dosage: 2.5 MICROGRAM, QD, 2 PUFFS
  3. PREDNISONE [Concomitant]
     Active Substance: PREDNISONE
     Route: 065
  4. SINGULAIR [Concomitant]
     Active Substance: MONTELUKAST SODIUM
     Route: 065
  5. VENTOLIN [Concomitant]
     Active Substance: ALBUTEROL SULFATE
     Route: 065
  6. ZENHALE [Concomitant]
     Active Substance: FORMOTEROL FUMARATE\MOMETASONE FUROATE
     Dosage: 200 MICROGRAM, BID, 2 PUFFS
     Route: 065

REACTIONS (8)
  - Mental impairment [Unknown]
  - Hallucination [Unknown]
  - Confusional state [Unknown]
  - Hyperhidrosis [Unknown]
  - Dyspnoea [Unknown]
  - Muscle spasms [Unknown]
  - Pain [Unknown]
  - Death [Fatal]
